FAERS Safety Report 6158029-1 (Version None)
Quarter: 2009Q2

REPORT INFORMATION
  Report Type: 
  Country: None (occurrence: None)
  Receive Date: 20090417
  Receipt Date: 20090408
  Transmission Date: 20091009
  Serious: Yes (Hospitalization, Other)
  Sender: FDA-Public Use
  Company Number: US-PFIZER INC-2005098898

PATIENT
  Sex: Female
  Weight: 115 kg

DRUGS (8)
  1. PROVERA [Suspect]
     Indication: MENOPAUSAL SYMPTOMS
     Route: 048
     Dates: start: 19930101, end: 20030101
  2. PREMARIN [Suspect]
     Indication: HORMONE REPLACEMENT THERAPY
     Route: 065
     Dates: start: 19930101, end: 20030101
  3. LOTENSIN [Concomitant]
     Indication: HYPERTENSION
     Dosage: UNK
     Dates: start: 19940101
  4. LIPITOR [Concomitant]
     Indication: BLOOD CHOLESTEROL
     Dosage: UNK
     Dates: start: 19950101
  5. SYNTHROID [Concomitant]
     Indication: THYROID DISORDER
     Dosage: UNK
     Dates: start: 19950101
  6. TOPROL-XL [Concomitant]
     Indication: BLOOD PRESSURE
     Dosage: UNK
     Dates: start: 19940101
  7. TOPROL-XL [Concomitant]
     Indication: HEART RATE
  8. HYDROCHLOROTHIAZIDE [Concomitant]
     Dosage: 12.5 MG, UNK
     Dates: start: 19940101

REACTIONS (1)
  - BREAST CANCER [None]
